FAERS Safety Report 4650208-5 (Version None)
Quarter: 2005Q2

REPORT INFORMATION
  Report Type: 
  Country: None (occurrence: None)
  Receive Date: 20050331
  Receipt Date: 20050202
  Transmission Date: 20051028
  Serious: No
  Sender: FDA-Public Use
  Company Number: 05P-163-0289241-00

PATIENT
  Age: 33 Year
  Sex: Female
  Weight: 58.9676 kg

DRUGS (6)
  1. HUMIRA [Suspect]
     Indication: CROHN'S DISEASE
     Dosage: 40 MG, 1 IN 2 WK, SUBCUTANEOUS
     Route: 058
     Dates: start: 20050119
  2. METHOTREXATE [Concomitant]
  3. CIPROFLOXACIN HYDROCHLORIDE [Concomitant]
  4. PENTASA [Concomitant]
  5. PANTOPRAZOLE SODIUM [Concomitant]
  6. ORTHO EVRA [Concomitant]

REACTIONS (1)
  - RASH [None]
